FAERS Safety Report 6110314-5 (Version None)
Quarter: 2009Q1

REPORT INFORMATION
  Report Type: 
  Country: None (occurrence: None)
  Receive Date: 20090310
  Receipt Date: 20090226
  Transmission Date: 20090719
  Serious: Yes (Other)
  Sender: FDA-Public Use
  Company Number: FR-PFIZER INC-2009165221

PATIENT

DRUGS (12)
  1. LYRICA [Suspect]
     Indication: NEURALGIA
     Dosage: 75 MG, 2X/DAY
     Dates: start: 20071002, end: 20071130
  2. LYRICA [Suspect]
     Indication: DIABETIC NEUROPATHY
  3. GLUCOPHAGE [Concomitant]
     Dosage: UNK, 3X/DAY
  4. PRAXILENE [Concomitant]
     Dosage: UNK
  5. TADENAN [Concomitant]
     Dosage: UNK
  6. EZETIMIBE/SIMVASTATIN [Concomitant]
     Dosage: UNK
  7. NEBIVOLOL [Concomitant]
     Dosage: UNK
  8. APROVEL [Concomitant]
     Dosage: UNK
  9. DIAMICRON [Concomitant]
     Dosage: UNK
  10. AMLOR [Concomitant]
     Dosage: UNK
  11. PLAVIX [Concomitant]
     Dosage: UNK
  12. TRIMETAZIDINE [Concomitant]
     Dosage: UNK

REACTIONS (3)
  - GALLBLADDER ENLARGEMENT [None]
  - JAUNDICE [None]
  - TRANSAMINASES INCREASED [None]
